FAERS Safety Report 10225087 (Version 1)
Quarter: 2014Q2

REPORT INFORMATION
  Report Type: Spontaneous
  Country: IT (occurrence: IT)
  Receive Date: 20140609
  Receipt Date: 20140609
  Transmission Date: 20141212
  Serious: Yes (Other)
  Sender: FDA-Public Use
  Company Number: IT-TEVA-485385ISR

PATIENT
  Age: 79 Year
  Sex: Female

DRUGS (6)
  1. ENALAPRIL MALEATE [Suspect]
     Indication: CARDIAC FAILURE
     Dosage: 5 MILLIGRAM DAILY; 5 MG DAILY
     Route: 048
     Dates: start: 20140101, end: 20140506
  2. ALDACTONE 100 MG COMPRESSE RIVESTITE - SANOFI-AVENTIS S.P.A. [Interacting]
     Indication: HYPERTENSION
     Dosage: 100 MILLIGRAM DAILY; 100 MG DAILY
     Route: 048
     Dates: start: 20140101, end: 20140506
  3. LAEVOLAC 66,7 G/100 ML SCIROPPO [Concomitant]
     Indication: ASTRINGENT THERAPY
     Route: 048
     Dates: start: 20140101, end: 20140506
  4. LASIX 25 MG COMPRESSE [Concomitant]
     Indication: OEDEMA
     Dosage: 25 MG
     Route: 048
     Dates: start: 20140101, end: 20140506
  5. BISOPROLOL HEMIFUMARATE [Concomitant]
     Indication: HYPERTENSION
     Dosage: 10 MG
     Route: 048
     Dates: start: 20140101, end: 20140506
  6. PANTOPRAZOLE SODIUM [Concomitant]
     Indication: PROPHYLAXIS AGAINST GASTROINTESTINAL ULCER
     Dosage: 40 MG
     Route: 048
     Dates: start: 20140101, end: 20140506

REACTIONS (2)
  - Drug interaction [Recovered/Resolved]
  - Hyperkalaemia [Recovered/Resolved]
